FAERS Safety Report 17604373 (Version 1)
Quarter: 2020Q1

REPORT INFORMATION
  Report Type: Spontaneous
  Country: US (occurrence: US)
  Receive Date: 20200328
  Receipt Date: 20200328
  Transmission Date: 20200409
  Serious: No
  Sender: FDA-Public Use
  Company Number: None

PATIENT
  Sex: Male

DRUGS (3)
  1. SIROLIMUS 1MG GREENSTONE [Suspect]
     Active Substance: SIROLIMUS
     Indication: LIVER TRANSPLANT
     Route: 048
     Dates: start: 202001
  2. TACROLIMUS. [Concomitant]
     Active Substance: TACROLIMUS
  3. MYCOPHENOLATE [Concomitant]
     Active Substance: MYCOPHENOLIC ACID

REACTIONS (2)
  - Headache [None]
  - Vomiting [None]
